FAERS Safety Report 24880958 (Version 2)
Quarter: 2025Q3

REPORT INFORMATION
  Report Type: Spontaneous
  Country: US (occurrence: US)
  Receive Date: 20250124
  Receipt Date: 20250816
  Transmission Date: 20251021
  Serious: No
  Sender: ROCHE
  Company Number: US-ROCHE-10000185837

PATIENT
  Sex: Female

DRUGS (11)
  1. VABYSMO [Suspect]
     Active Substance: FARICIMAB-SVOA
     Indication: Retinal vein occlusion
     Route: 050
     Dates: start: 202401, end: 202411
  2. LEVOTHYROXINE [Concomitant]
     Active Substance: LEVOTHYROXINE
     Route: 048
     Dates: start: 1985
  3. CYMBALTA [Concomitant]
     Active Substance: DULOXETINE HYDROCHLORIDE
     Indication: Depression
     Route: 048
     Dates: end: 2023
  4. CITALOPRAM [Concomitant]
     Active Substance: CITALOPRAM
     Indication: Depression
     Route: 048
     Dates: start: 2023, end: 2025
  5. COENZYME COQ10 [Concomitant]
     Indication: Angina pectoris
     Route: 048
     Dates: start: 2012
  6. VITAMIN D3 [Concomitant]
     Active Substance: CHOLECALCIFEROL
     Indication: Angina pectoris
     Route: 048
     Dates: start: 2012
  7. VITAMIN K 2 [Concomitant]
     Indication: Angina pectoris
     Route: 048
     Dates: start: 2012
  8. EYE SUPPORT [Concomitant]
     Route: 048
  9. ALEVE [Concomitant]
     Active Substance: NAPROXEN SODIUM
     Route: 048
  10. EYLEA [Concomitant]
     Active Substance: AFLIBERCEPT
     Indication: Retinal vein occlusion
     Route: 050
     Dates: start: 202411
  11. EYLEA [Concomitant]
     Active Substance: AFLIBERCEPT
     Route: 050
     Dates: start: 2012, end: 202401

REACTIONS (3)
  - Vascular rupture [Recovered/Resolved]
  - Off label use [Unknown]
  - Eye haemorrhage [Unknown]
